FAERS Safety Report 9853105 (Version 2)
Quarter: 2014Q1

REPORT INFORMATION
  Report Type: Spontaneous
  Country: US (occurrence: US)
  Receive Date: 20140129
  Receipt Date: 20140129
  Transmission Date: 20141002
  Serious: No
  Sender: FDA-Public Use
  Company Number: US-BAXTER-2014BAX001294

PATIENT
  Age: 76 Year
  Sex: Female

DRUGS (4)
  1. DIANEAL LOW CALCIUM [Suspect]
     Indication: PERITONEAL DIALYSIS
     Route: 033
  2. DIANEAL LOW CALCIUM [Suspect]
     Indication: PERITONEAL DIALYSIS
     Route: 033
  3. COREG [Suspect]
     Indication: BLOOD PRESSURE FLUCTUATION
     Route: 065
  4. CLONIDINE [Suspect]
     Indication: BLOOD PRESSURE FLUCTUATION
     Route: 065

REACTIONS (1)
  - Blood pressure fluctuation [Not Recovered/Not Resolved]
